FAERS Safety Report 10607338 (Version 1)
Quarter: 2014Q4

REPORT INFORMATION
  Report Type: Spontaneous
  Country: US (occurrence: None)
  Receive Date: 20141124
  Receipt Date: 20141124
  Transmission Date: 20150529
  Serious: Yes (Hospitalization)
  Sender: FDA-Public Use
  Company Number: None

PATIENT
  Age: 86 Year
  Sex: Female
  Weight: 113.4 kg

DRUGS (8)
  1. GLUCOTROL XL [Suspect]
     Active Substance: GLIPIZIDE
     Indication: DIABETES MELLITUS
     Dosage: 10MG  DAILY  PO?CHRONIC
     Route: 048
  2. ASA [Concomitant]
     Active Substance: ASPIRIN
  3. PRINIVIL [Concomitant]
     Active Substance: LISINOPRIL
  4. ONGLYZA [Suspect]
     Active Substance: SAXAGLIPTIN HYDROCHLORIDE
     Indication: DIABETES MELLITUS
     Dosage: 5MG  DAILY  PO?CHRONIC
     Route: 048
  5. LANTUS [Suspect]
     Active Substance: INSULIN GLARGINE
     Indication: DIABETES MELLITUS
     Dosage: 45UNITS  SQ  NIGHTLY?
     Route: 058
  6. METOPROLOL SUCCINATE. [Concomitant]
     Active Substance: METOPROLOL SUCCINATE
  7. CYANOCOBALAMIN. [Concomitant]
     Active Substance: CYANOCOBALAMIN
  8. VYTORIN [Concomitant]
     Active Substance: EZETIMIBE\SIMVASTATIN

REACTIONS (3)
  - Balance disorder [None]
  - Hypoglycaemia [None]
  - Hypoaesthesia [None]

NARRATIVE: CASE EVENT DATE: 20140816
